FAERS Safety Report 8102054-8 (Version None)
Quarter: 2012Q1

REPORT INFORMATION
  Report Type: 
  Country: None (occurrence: None)
  Receive Date: 20120131
  Receipt Date: 20120123
  Transmission Date: 20120608
  Serious: Yes (Death, Hospitalization)
  Sender: FDA-Public Use
  Company Number: PH-BAXTER-2012BH002588

PATIENT
  Sex: Male

DRUGS (1)
  1. DIANEAL [Suspect]
     Indication: PERITONEAL DIALYSIS
     Route: 033
     Dates: start: 20110516

REACTIONS (4)
  - FLUID OVERLOAD [None]
  - TREATMENT NONCOMPLIANCE [None]
  - OEDEMA [None]
  - CARDIO-RESPIRATORY ARREST [None]
